FAERS Safety Report 11693437 (Version 2)
Quarter: 2015Q4

REPORT INFORMATION
  Report Type: Spontaneous
  Country: None (occurrence: CN)
  Receive Date: 20151103
  Receipt Date: 20151103
  Transmission Date: 20160304
  Serious: Yes (Hospitalization)
  Sender: FDA-Public Use
  Company Number: CHN-MERCKDARMSTADT-7294943

PATIENT

DRUGS (1)
  1. NOVOTHYROX [Suspect]
     Active Substance: LEVOTHYROXINE SODIUM

REACTIONS (4)
  - Supraventricular extrasystoles [None]
  - Tri-iodothyronine decreased [None]
  - Thyroxine decreased [None]
  - Blood thyroid stimulating hormone increased [None]
